FAERS Safety Report 20199362 (Version 1)
Quarter: 2021Q4

REPORT INFORMATION
  Report Type: Spontaneous
  Country: US (occurrence: US)
  Receive Date: 20211217
  Receipt Date: 20211217
  Transmission Date: 20220304
  Serious: No
  Sender: FDA-Public Use
  Company Number: US-PACIRA-202000542

PATIENT
  Sex: Male
  Weight: 110 kg

DRUGS (2)
  1. EXPAREL [Suspect]
     Active Substance: BUPIVACAINE
     Dosage: 266 MG/20 ML WITH BUPIVACAINE 250 MG
     Route: 065
  2. BUPIVACAINE [Suspect]
     Active Substance: BUPIVACAINE
     Dosage: 250 MG WITH 266 MG/20 ML OF EXPAREL
     Route: 065

REACTIONS (3)
  - Off label use [Unknown]
  - Intentional overdose [Unknown]
  - No adverse event [Unknown]
